FAERS Safety Report 17634168 (Version 1)
Quarter: 2020Q2

REPORT INFORMATION
  Report Type: Spontaneous
  Country: DE (occurrence: DE)
  Receive Date: 20200406
  Receipt Date: 20200406
  Transmission Date: 20200713
  Serious: Yes (Other)
  Sender: FDA-Public Use
  Company Number: NVSC2020DE092936

PATIENT
  Sex: Male

DRUGS (2)
  1. METOHEXAL SUCC 23,75 MG RETARDTABLETTEN [Suspect]
     Active Substance: METOPROLOL SUCCINATE
     Indication: PRODUCT USED FOR UNKNOWN INDICATION
     Route: 065
  2. FLECAINID - 1 A PHARMA 50 MG TABLETTEN [Suspect]
     Active Substance: FLECAINIDE ACETATE
     Indication: PRODUCT USED FOR UNKNOWN INDICATION
     Route: 065

REACTIONS (5)
  - Hypotension [Unknown]
  - Erectile dysfunction [Unknown]
  - Nausea [Unknown]
  - Contraindicated product administered [Unknown]
  - Dizziness [Unknown]
